FAERS Safety Report 8192993-4 (Version None)
Quarter: 2012Q1

REPORT INFORMATION
  Report Type: 
  Country: None (occurrence: None)
  Receive Date: 20120308
  Receipt Date: 20120301
  Transmission Date: 20120608
  Serious: Yes (Other)
  Sender: FDA-Public Use
  Company Number: US-RB-031945-11

PATIENT
  Age: 69 Year
  Sex: Male

DRUGS (4)
  1. DELSYM [Suspect]
     Indication: SINUS CONGESTION
     Route: 048
     Dates: start: 20111218
  2. ASPIRIN [Concomitant]
     Indication: PRODUCT USED FOR UNKNOWN INDICATION
  3. DELSYM [Suspect]
     Indication: COUGH
     Route: 048
     Dates: start: 20111218
  4. LIPITOR [Concomitant]
     Indication: PRODUCT USED FOR UNKNOWN INDICATION

REACTIONS (5)
  - INTENTIONAL SELF-INJURY [None]
  - CONFUSIONAL STATE [None]
  - FALL [None]
  - MOTOR DYSFUNCTION [None]
  - FACIAL BONES FRACTURE [None]
